FAERS Safety Report 12965664 (Version 1)
Quarter: 2016Q4

REPORT INFORMATION
  Report Type: Spontaneous
  Country: US (occurrence: US)
  Receive Date: 20161122
  Receipt Date: 20161122
  Transmission Date: 20170207
  Serious: Yes (Other)
  Sender: FDA-Public Use
  Company Number: US-TEVA-714285USA

PATIENT
  Age: 87 Year
  Sex: Male
  Weight: 68.03 kg

DRUGS (1)
  1. GUAIFENESIN W/PSEUDOEPHEDRINE [Suspect]
     Active Substance: GUAIFENESIN\PSEUDOEPHEDRINE HYDROCHLORIDE
     Indication: PRODUCTIVE COUGH
     Dosage: GUAIFENESIN 1200 MG + DEXTROMETHORPHAN HYDROBROMIDE 60 MG
     Route: 048
     Dates: start: 20161028, end: 20161028

REACTIONS (2)
  - Foreign body [Recovered/Resolved]
  - Choking [Recovered/Resolved]

NARRATIVE: CASE EVENT DATE: 20161028
